FAERS Safety Report 25450249 (Version 1)
Quarter: 2025Q2

REPORT INFORMATION
  Report Type: Other
  Country: GB (occurrence: GB)
  Receive Date: 20250618
  Receipt Date: 20250618
  Transmission Date: 20250717
  Serious: Yes (Other)
  Sender: LUPIN
  Company Number: None

PATIENT
  Age: 22 Year
  Sex: Female
  Weight: 54 kg

DRUGS (2)
  1. LEVONORGESTREL AND ETHINYL ESTRADIOL [Suspect]
     Active Substance: ETHINYL ESTRADIOL\LEVONORGESTREL
     Indication: Product used for unknown indication
     Route: 065
  2. LEVONORGESTREL [Suspect]
     Active Substance: LEVONORGESTREL
     Indication: Product used for unknown indication
     Route: 065

REACTIONS (2)
  - Vaginal haemorrhage [Not Recovered/Not Resolved]
  - Ectropion of cervix [Not Recovered/Not Resolved]
